FAERS Safety Report 8592466-0 (Version None)
Quarter: 2012Q3

REPORT INFORMATION
  Report Type: 
  Country: None (occurrence: None)
  Receive Date: 20120814
  Receipt Date: 20120809
  Transmission Date: 20120928
  Serious: Yes (Other)
  Sender: FDA-Public Use
  Company Number: GB-PFIZER INC-2012194333

PATIENT
  Age: 23 Year
  Sex: Female

DRUGS (6)
  1. PARALDEHYDE [Suspect]
     Dosage: UNK
  2. LORAZEPAM [Suspect]
     Dosage: UNK
  3. DIAZEPAM [Suspect]
     Dosage: UNK
  4. CARBAMAZEPINE [Suspect]
     Dosage: UNK
  5. PHENYTOIN [Suspect]
     Dosage: UNK
  6. PHENOBARBITAL TAB [Suspect]
     Dosage: UNK

REACTIONS (1)
  - TUBULOINTERSTITIAL NEPHRITIS [None]
